FAERS Safety Report 9664509 (Version 2)
Quarter: 2013Q4

REPORT INFORMATION
  Report Type: Spontaneous
  Country: JP (occurrence: JP)
  Receive Date: 20131101
  Receipt Date: 20131101
  Transmission Date: 20140711
  Serious: Yes (Hospitalization)
  Sender: FDA-Public Use
  Company Number: JP-BAXTER-2013BAX039942

PATIENT
  Age: 69 Year
  Sex: Male
  Weight: 55 kg

DRUGS (15)
  1. ADVATE 2000 [Suspect]
     Indication: BIOPSY PROSTATE
     Route: 042
     Dates: start: 20130813, end: 20130813
  2. ADVATE 2000 [Suspect]
     Indication: RESECTION OF RECTUM
     Route: 042
     Dates: start: 20130814, end: 20130814
  3. ADVATE 2000 [Suspect]
     Route: 042
     Dates: start: 20130815, end: 20130815
  4. ADVATE 2000 [Suspect]
     Route: 042
     Dates: start: 20130821, end: 20130821
  5. ADVATE 2000 [Suspect]
     Route: 042
     Dates: start: 20130822, end: 20130826
  6. ADVATE 2000 [Suspect]
     Route: 042
     Dates: start: 20130827, end: 20130828
  7. ADVATE 1000 [Suspect]
     Indication: MUSCLE HAEMORRHAGE
     Route: 042
     Dates: start: 20131001, end: 20131002
  8. ADVATE 1000 [Suspect]
     Route: 042
     Dates: start: 20131003, end: 20131004
  9. ADVATE 1000 [Suspect]
     Route: 042
     Dates: start: 20131005, end: 20131005
  10. ADVATE 500 [Suspect]
     Indication: BIOPSY PROSTATE
     Route: 042
     Dates: start: 20130813, end: 20130813
  11. ADVATE 500 [Suspect]
     Indication: RESECTION OF RECTUM
     Route: 042
     Dates: start: 20130814, end: 20130814
  12. ADVATE 500 [Suspect]
     Route: 042
     Dates: start: 20130821, end: 20130821
  13. ADVATE 500 [Suspect]
     Route: 042
     Dates: start: 20130821, end: 20130821
  14. ADVATE 500 [Suspect]
     Route: 042
     Dates: start: 20130822, end: 20130823
  15. ADVATE 500 [Suspect]
     Route: 042
     Dates: start: 20130824, end: 20130824

REACTIONS (2)
  - Factor VIII inhibition [Not Recovered/Not Resolved]
  - Muscle haemorrhage [Not Recovered/Not Resolved]
